FAERS Safety Report 24837999 (Version 1)
Quarter: 2025Q1

REPORT INFORMATION
  Report Type: Spontaneous
  Country: US (occurrence: US)
  Receive Date: 20250113
  Receipt Date: 20250113
  Transmission Date: 20250409
  Serious: Yes (Death)
  Sender: PFIZER
  Company Number: US-PFIZER INC-202400297047

PATIENT
  Age: 92 Year
  Sex: Male

DRUGS (2)
  1. BRAFTOVI [Suspect]
     Active Substance: ENCORAFENIB
     Indication: Rectal cancer
     Dosage: 300 MG (4 CAPSULES OF 75 MG), ONCE DAILY, WHOLE WITH OR WITHOUT FOOD
     Route: 048
  2. BRAFTOVI [Suspect]
     Active Substance: ENCORAFENIB

REACTIONS (1)
  - Death [Fatal]

NARRATIVE: CASE EVENT DATE: 20241204
